FAERS Safety Report 7222136-2 (Version None)
Quarter: 2011Q1

REPORT INFORMATION
  Report Type: 
  Country: None (occurrence: None)
  Receive Date: 20110112
  Receipt Date: 20110103
  Transmission Date: 20110831
  Serious: Yes (Hospitalization, Disabling)
  Sender: FDA-Public Use
  Company Number: FR-ASTRAZENECA-2010SE56508

PATIENT
  Age: 680 Month
  Sex: Male

DRUGS (5)
  1. PRETERAX [Suspect]
     Indication: HYPERTENSION
  2. LANTUS [Concomitant]
     Indication: TYPE 1 DIABETES MELLITUS
  3. IMUREL [Suspect]
     Indication: AUTOIMMUNE HEPATITIS
     Route: 048
     Dates: start: 20090801
  4. NOVORAPID [Concomitant]
     Indication: TYPE 1 DIABETES MELLITUS
  5. ENTOCORT EC [Suspect]
     Indication: AUTOIMMUNE HEPATITIS
     Route: 048
     Dates: start: 20090801, end: 20100601

REACTIONS (3)
  - MUSCLE SPASMS [None]
  - MUSCULAR WEAKNESS [None]
  - MYALGIA [None]
